FAERS Safety Report 7728915-7 (Version None)
Quarter: 2011Q3

REPORT INFORMATION
  Report Type: 
  Country: None (occurrence: None)
  Receive Date: 20110831
  Receipt Date: 20110831
  Transmission Date: 20111222
  Serious: Yes (Death)
  Sender: FDA-Public Use
  Company Number: None

PATIENT
  Age: 86 Year
  Sex: Female
  Weight: 54.4316 kg

DRUGS (6)
  1. ASPIRIN [Suspect]
     Dosage: BABY ASPIRIN
  2. PRAVASTATIN SODIUM [Concomitant]
  3. LEVOTHYROXINE SODIUM [Concomitant]
  4. PLAVIX [Suspect]
     Indication: ATRIAL FIBRILLATION
     Dosage: 75 MG TAB 1/DAY
     Dates: start: 20100701, end: 20100901
  5. DETROL LA [Concomitant]
  6. LEVETIRACETAM [Concomitant]

REACTIONS (1)
  - CEREBRAL HAEMORRHAGE [None]
